FAERS Safety Report 11102345 (Version 1)
Quarter: 2015Q2

REPORT INFORMATION
  Report Type: Spontaneous
  Country: US (occurrence: None)
  Receive Date: 20150507
  Receipt Date: 20150507
  Transmission Date: 20150821
  Serious: Yes (Hospitalization, Other)
  Sender: FDA-Public Use
  Company Number: ADR-2011-10498

PATIENT
  Sex: Female

DRUGS (1)
  1. LIORESAL [Suspect]
     Active Substance: BACLOFEN
     Indication: PRODUCT USED FOR UNKNOWN INDICATION

REACTIONS (23)
  - Paraesthesia [None]
  - Chills [None]
  - Headache [None]
  - Vomiting [None]
  - Lymphatic disorder [None]
  - Constipation [None]
  - Back pain [None]
  - Swelling [None]
  - Gait disturbance [None]
  - Device dislocation [None]
  - Injury [None]
  - Crying [None]
  - Inappropriate affect [None]
  - Malaise [None]
  - Underdose [None]
  - Muscle spasticity [None]
  - Emotional disorder [None]
  - Device ineffective [None]
  - Renal failure [None]
  - Lymphoedema [None]
  - Dizziness [None]
  - Nausea [None]
  - Nervousness [None]
